FAERS Safety Report 17766142 (Version 1)
Quarter: 2020Q2

REPORT INFORMATION
  Report Type: Spontaneous
  Country: US (occurrence: US)
  Receive Date: 20200511
  Receipt Date: 20200511
  Transmission Date: 20200714
  Serious: No
  Sender: FDA-Public Use
  Company Number: US-GW PHARMA-202005USGW01642

PATIENT

DRUGS (2)
  1. EPIDIOLEX [Suspect]
     Active Substance: CANNABIDIOL
     Indication: NERVOUS SYSTEM DISORDER
     Dosage: 100 MILLIGRAM, BID
     Route: 048
     Dates: start: 20200313
  2. EPIDIOLEX [Suspect]
     Active Substance: CANNABIDIOL
     Indication: FEBRILE CONVULSION

REACTIONS (2)
  - Diarrhoea [Not Recovered/Not Resolved]
  - Product use in unapproved indication [Not Recovered/Not Resolved]

NARRATIVE: CASE EVENT DATE: 2020
